FAERS Safety Report 5683556-0 (Version None)
Quarter: 2008Q1

REPORT INFORMATION
  Report Type: 
  Country: None (occurrence: None)
  Receive Date: 20080328
  Receipt Date: 20080320
  Transmission Date: 20080703
  Serious: Yes (Other)
  Sender: FDA-Public Use
  Company Number: DE-RANBAXY-2008RR-13909

PATIENT

DRUGS (2)
  1. RAMIPRIL BASICS PLUS 5MG/25MG FILMTABLETTEN [Suspect]
  2. RAMIPRIL ISIS COMP. 5/25MG TABLETS [Concomitant]

REACTIONS (1)
  - DRUG INEFFECTIVE [None]
